FAERS Safety Report 23320343 (Version 1)
Quarter: 2023Q4

REPORT INFORMATION
  Report Type: Spontaneous
  Country: US (occurrence: US)
  Receive Date: 20231220
  Receipt Date: 20231220
  Transmission Date: 20240109
  Serious: No
  Sender: FDA-Public Use
  Company Number: US-PROVENTION BIO, INC.-US-PRAG-23-00073

PATIENT
  Age: 44 Year
  Sex: Male
  Weight: 66.68 kg

DRUGS (6)
  1. TZIELD [Suspect]
     Active Substance: TEPLIZUMAB-MZWV
     Indication: Diabetes prophylaxis
     Dosage: 115.7 MICROGRAM
     Route: 042
     Dates: start: 20230824, end: 20230824
  2. TZIELD [Suspect]
     Active Substance: TEPLIZUMAB-MZWV
     Dosage: 222.5 MICROGRAM
     Route: 042
     Dates: start: 20230825, end: 20230825
  3. TZIELD [Suspect]
     Active Substance: TEPLIZUMAB-MZWV
     Dosage: 445 MICROGRAM
     Route: 042
     Dates: start: 20230826, end: 20230826
  4. TZIELD [Suspect]
     Active Substance: TEPLIZUMAB-MZWV
     Dosage: 890 MICROGRAM
     Route: 042
     Dates: start: 20230827, end: 20230827
  5. TZIELD [Suspect]
     Active Substance: TEPLIZUMAB-MZWV
     Dosage: 1833.4 MICROGRAM
     Route: 042
     Dates: start: 20230828, end: 20230906
  6. VITAMIN D NOS [Concomitant]
     Active Substance: VITAMIN D NOS
     Indication: Product used for unknown indication
     Dosage: 10 MG , ORAL USE, DAILY
     Route: 048

REACTIONS (5)
  - Hypoaesthesia [Recovered/Resolved]
  - Paraesthesia [Recovered/Resolved]
  - Influenza like illness [Recovered/Resolved]
  - Blood alkaline phosphatase decreased [Unknown]
  - Blood cholesterol increased [Unknown]

NARRATIVE: CASE EVENT DATE: 20230826
